FAERS Safety Report 10731021 (Version 1)
Quarter: 2015Q1

REPORT INFORMATION
  Report Type: Spontaneous
  Country: US (occurrence: US)
  Receive Date: 20150122
  Receipt Date: 20150122
  Transmission Date: 20150721
  Serious: No
  Sender: FDA-Public Use
  Company Number: US-PFIZER INC-2015025558

PATIENT
  Age: 48 Year
  Sex: Male
  Weight: 108 kg

DRUGS (1)
  1. CHANTIX [Suspect]
     Active Substance: VARENICLINE TARTRATE
     Indication: EX-TOBACCO USER
     Dosage: UNK

REACTIONS (3)
  - Weight increased [Unknown]
  - Mood altered [Unknown]
  - Irritability [Recovered/Resolved]
